FAERS Safety Report 5255441-X (Version None)
Quarter: 2007Q1

REPORT INFORMATION
  Report Type: 
  Country: None (occurrence: None)
  Receive Date: 20070305
  Receipt Date: 20070216
  Transmission Date: 20070707
  Serious: Yes (Death, Hospitalization)
  Sender: FDA-Public Use
  Company Number: GB-BRISTOL-MYERS SQUIBB COMPANY-13695085

PATIENT
  Age: 69 Year
  Sex: Female

DRUGS (9)
  1. CETUXIMAB [Suspect]
     Indication: COLORECTAL CANCER METASTATIC
     Route: 042
     Dates: start: 20060920, end: 20060920
  2. OXALIPLATIN [Suspect]
     Indication: COLORECTAL CANCER METASTATIC
     Route: 042
     Dates: start: 20061018, end: 20061018
  3. CAPECITABINE [Suspect]
     Indication: COLORECTAL CANCER METASTATIC
     Route: 048
     Dates: start: 20061030, end: 20061030
  4. CITALOPRAM HYDROBROMIDE [Concomitant]
  5. MST [Concomitant]
  6. HALOPERIDOL [Concomitant]
     Dates: start: 20060101
  7. LANSOPRAZOLE [Concomitant]
     Dates: start: 20060101
  8. ZOPICLONE [Concomitant]
     Dates: start: 20060609
  9. METOCLOPRAMIDE [Concomitant]

REACTIONS (7)
  - DEATH [None]
  - DIARRHOEA [None]
  - DIZZINESS [None]
  - FALL [None]
  - LETHARGY [None]
  - SUBDURAL HAEMATOMA [None]
  - VOMITING [None]
